FAERS Safety Report 10779471 (Version 1)
Quarter: 2015Q1

REPORT INFORMATION
  Report Type: Spontaneous
  Country: CN (occurrence: None)
  Receive Date: 20150206
  Receipt Date: 20150206
  Transmission Date: 20150721
  Serious: Yes (Life-Threatening, Hospitalization)
  Sender: FDA-Public Use
  Company Number: NSR_01803_2015

PATIENT
  Age: 48 Year
  Sex: Male

DRUGS (1)
  1. ALLOPURINOL (ALLOPURINOL) [Suspect]
     Active Substance: ALLOPURINOL
     Indication: PRODUCT USED FOR UNKNOWN INDICATION
     Dosage: 300 MG, DAILY 4 WEEKS 0 DAYS

REACTIONS (6)
  - Renal impairment [None]
  - Hepatic function abnormal [None]
  - Leukocytosis [None]
  - Erythema multiforme [None]
  - Pyrexia [None]
  - Angioedema [None]
